FAERS Safety Report 4915069-5 (Version None)
Quarter: 2006Q1

REPORT INFORMATION
  Report Type: 
  Country: None (occurrence: None)
  Receive Date: 20060215
  Receipt Date: 20060215
  Transmission Date: 20060701
  Serious: Yes (Hospitalization)
  Sender: FDA-Public Use
  Company Number: None

PATIENT
  Sex: Male
  Weight: 103.4201 kg

DRUGS (17)
  1. COUMADIN [Suspect]
     Indication: PULMONARY EMBOLISM
     Dosage: 5 MG PO QD
     Route: 048
  2. CARBIDOPA AND LEVODOPA [Concomitant]
  3. DETROL LA [Concomitant]
  4. REQUIP [Concomitant]
  5. PROVIGIL [Concomitant]
  6. NORVASC [Concomitant]
  7. PROTONIX [Concomitant]
  8. FUROSEMIDE [Concomitant]
  9. BENICAR [Concomitant]
  10. ZOLOFT [Concomitant]
  11. KLOR-CON [Concomitant]
  12. CARDIZEM CD [Concomitant]
  13. DIGOXIN [Concomitant]
  14. COMBIVENT [Concomitant]
  15. SPIRIVA [Concomitant]
  16. XANAX [Concomitant]
  17. NTG SL [Concomitant]

REACTIONS (1)
  - COAGULOPATHY [None]
